FAERS Safety Report 5470014-1 (Version None)
Quarter: 2007Q3

REPORT INFORMATION
  Report Type: 
  Country: None (occurrence: None)
  Receive Date: 20070927
  Receipt Date: 20070917
  Transmission Date: 20080115
  Serious: Yes (Death, Other)
  Sender: FDA-Public Use
  Company Number: US-PFIZER INC-2006151221

PATIENT
  Sex: Male
  Weight: 122.5 kg

DRUGS (3)
  1. BEXTRA [Suspect]
     Indication: PAIN
     Route: 048
     Dates: start: 20030401, end: 20041031
  2. VIOXX [Suspect]
     Indication: PAIN
     Route: 048
     Dates: start: 20021201, end: 20030401
  3. VIOXX [Suspect]
     Indication: RHEUMATOID ARTHRITIS

REACTIONS (1)
  - MYOCARDIAL INFARCTION [None]
